FAERS Safety Report 5370844-0 (Version None)
Quarter: 2007Q2

REPORT INFORMATION
  Report Type: 
  Country: None (occurrence: None)
  Receive Date: 20070614
  Receipt Date: 20070420
  Transmission Date: 20071010
  Serious: No
  Sender: FDA-Public Use
  Company Number: BDI-009442

PATIENT
  Age: 50 Year
  Sex: Male
  Weight: 72.27 kg

DRUGS (3)
  1. MULTIHANCE [Suspect]
     Indication: DIPLOPIA
     Dosage: 15 ML ONCE IV
     Route: 042
     Dates: start: 20070419, end: 20070419
  2. MULTIHANCE [Suspect]
     Indication: MASS
     Dosage: 15 ML ONCE IV
     Route: 042
     Dates: start: 20070419, end: 20070419
  3. MULTIHANCE [Suspect]
     Indication: NUCLEAR MAGNETIC RESONANCE IMAGING BRAIN
     Dosage: 15 ML ONCE IV
     Route: 042
     Dates: start: 20070419, end: 20070419

REACTIONS (1)
  - HYPERSENSITIVITY [None]
